FAERS Safety Report 8835239 (Version 1)
Quarter: 2012Q4

REPORT INFORMATION
  Report Type: 
  Country: BR (occurrence: BR)
  Receive Date: 20121011
  Receipt Date: 20121011
  Transmission Date: 20130627
  Serious: Yes (Hospitalization)
  Sender: FDA-Public Use
  Company Number: BR-ROCHE-1138682

PATIENT
  Sex: Female

DRUGS (11)
  1. RIVOTRIL [Suspect]
     Indication: PRODUCT USED FOR UNKNOWN INDICATION
     Route: 065
  2. ALPRAZOLAM [Suspect]
     Indication: ANXIETY
     Route: 048
  3. AAS [Concomitant]
     Route: 065
  4. SERTRALINE [Concomitant]
     Indication: ANXIETY
     Route: 065
  5. LOSARTAN [Concomitant]
     Indication: HYPERTENSION
     Route: 065
  6. LEKOVIT C-CA [Concomitant]
     Route: 065
  7. VITAMIN [Concomitant]
     Route: 065
  8. VASOGARD [Concomitant]
     Route: 065
     Dates: start: 20120522
  9. COUMARIN [Concomitant]
     Route: 065
     Dates: start: 20120522
  10. COUMARIN [Concomitant]
     Route: 065
  11. FRONTAL [Concomitant]

REACTIONS (6)
  - Arterial occlusive disease [Unknown]
  - Neoplasm [Unknown]
  - Lipodystrophy acquired [Unknown]
  - Affect lability [Unknown]
  - Abdominal pain [Recovered/Resolved]
  - Feeling abnormal [Unknown]
